FAERS Safety Report 5321700-5 (Version None)
Quarter: 2007Q2

REPORT INFORMATION
  Report Type: 
  Country: None (occurrence: None)
  Receive Date: 20070510
  Receipt Date: 20070430
  Transmission Date: 20071010
  Serious: Yes (Other)
  Sender: FDA-Public Use
  Company Number: NO-PFIZER INC-2007025706

PATIENT
  Sex: Female

DRUGS (2)
  1. LYRICA [Suspect]
     Indication: RESTLESS LEGS SYNDROME
     Route: 048
     Dates: start: 20060918, end: 20070211
  2. LYRICA [Suspect]
     Indication: NEUROPATHY

REACTIONS (4)
  - DISORIENTATION [None]
  - DISTURBANCE IN ATTENTION [None]
  - FEELING DRUNK [None]
  - MEMORY IMPAIRMENT [None]
